FAERS Safety Report 16095396 (Version 4)
Quarter: 2019Q2

REPORT INFORMATION
  Report Type: Report from Study
  Country: None (occurrence: CH)
  Receive Date: 20190320
  Receipt Date: 20190411
  Transmission Date: 20190711
  Serious: Yes (Death)
  Sender: FDA-Public Use
  Company Number: CH-ABBVIE-19S-151-2710020-00

PATIENT
  Age: 87 Year
  Sex: Male

DRUGS (5)
  1. DUODOPA [Suspect]
     Active Substance: CARBIDOPA\LEVODOPA
     Indication: PARKINSON^S DISEASE
     Dosage: 16H THERAPY
     Route: 050
     Dates: start: 20140903, end: 20170607
  2. DUODOPA [Suspect]
     Active Substance: CARBIDOPA\LEVODOPA
     Dosage: MD: 7 ML CRD 3 ML/H ED 1.4, 16H THERAPY
     Route: 050
     Dates: start: 20170607, end: 20180315
  3. DAFALGAN [Concomitant]
     Active Substance: ACETAMINOPHEN
     Indication: PRODUCT USED FOR UNKNOWN INDICATION
  4. CARBIDOPA. [Concomitant]
     Active Substance: CARBIDOPA
     Indication: PRODUCT USED FOR UNKNOWN INDICATION
  5. DUODOPA [Suspect]
     Active Substance: CARBIDOPA\LEVODOPA
     Dosage: MD: 8 ML CRD 3 ML/H ED 1.4, 16H THERAPY
     Route: 050
     Dates: start: 20180315

REACTIONS (5)
  - Haemorrhagic stroke [Fatal]
  - Cerebral haemorrhage [Fatal]
  - Atrial fibrillation [Fatal]
  - Unevaluable event [Recovered/Resolved]
  - Unresponsive to stimuli [Fatal]

NARRATIVE: CASE EVENT DATE: 2019
